FAERS Safety Report 9381301 (Version 1)
Quarter: 2013Q3

REPORT INFORMATION
  Report Type: Spontaneous
  Country: US (occurrence: US)
  Receive Date: 20130703
  Receipt Date: 20130703
  Transmission Date: 20140515
  Serious: Yes (Hospitalization, Other)
  Sender: FDA-Public Use
  Company Number: US-ASTRAZENECA-2013SE48623

PATIENT
  Age: 71 Year
  Sex: Female
  Weight: 63.5 kg

DRUGS (5)
  1. NEXIUM [Suspect]
     Indication: GASTRITIS
     Route: 048
     Dates: start: 2008
  2. CARDIZEM SR [Concomitant]
     Indication: MITRAL VALVE PROLAPSE
     Route: 048
  3. ATIVAN [Concomitant]
     Indication: FIBROMYALGIA
     Route: 048
  4. CALCIUM [Concomitant]
     Indication: SUPPLEMENTATION THERAPY
     Dosage: DAILY
     Route: 048
  5. TYLENOL [Concomitant]
     Indication: PAIN
     Dosage: PRN
     Route: 048

REACTIONS (2)
  - Bladder cancer [Unknown]
  - Intentional drug misuse [Unknown]
